FAERS Safety Report 14025314 (Version 9)
Quarter: 2020Q3

REPORT INFORMATION
  Report Type: Report from Study
  Country: US (occurrence: US)
  Receive Date: 20170929
  Receipt Date: 20200706
  Transmission Date: 20201102
  Serious: Yes (Other)
  Sender: FDA-Public Use
  Company Number: PHHY2017US072114

PATIENT
  Age: 35 Year
  Sex: Male

DRUGS (8)
  1. LIDOCAINE. [Concomitant]
     Active Substance: LIDOCAINE
     Indication: BIOPSY SKIN
     Dosage: UNK
     Route: 065
     Dates: start: 20170324, end: 20170324
  2. CYMBALTA [Concomitant]
     Active Substance: DULOXETINE HYDROCHLORIDE
     Indication: NEURALGIA
     Dosage: UNK
     Route: 065
     Dates: start: 20170316
  3. GILENYA [Suspect]
     Active Substance: FINGOLIMOD HYDROCHLORIDE
     Dosage: UNK
     Route: 048
  4. GILENYA [Suspect]
     Active Substance: FINGOLIMOD HYDROCHLORIDE
     Indication: MULTIPLE SCLEROSIS
     Dosage: UNK, QD
     Route: 048
     Dates: start: 20170314, end: 20171129
  5. LIDOCAINE. [Concomitant]
     Active Substance: LIDOCAINE
     Indication: ANAESTHESIA
     Dosage: UNK
     Route: 065
     Dates: start: 20170509, end: 20170509
  6. BACITRACIN. [Concomitant]
     Active Substance: BACITRACIN
     Indication: NEOPLASM
     Dosage: UNK
     Route: 065
     Dates: start: 20170509, end: 20170509
  7. LIDOCAINE. [Concomitant]
     Active Substance: LIDOCAINE
     Indication: NEOPLASM
  8. BACITRACIN. [Concomitant]
     Active Substance: BACITRACIN
     Indication: DERMATITIS
     Dosage: UNK
     Route: 065
     Dates: start: 20170324, end: 20170324

REACTIONS (11)
  - Dermal cyst [Recovered/Resolved]
  - Rash [Recovered/Resolved]
  - Muscle spasms [Not Recovered/Not Resolved]
  - Depression [Not Recovered/Not Resolved]
  - Eczema [Unknown]
  - Musculoskeletal pain [Not Recovered/Not Resolved]
  - Dermatitis [Recovered/Resolved]
  - Cognitive disorder [Not Recovered/Not Resolved]
  - Pneumonia [Recovered/Resolved]
  - Tachycardia [Not Recovered/Not Resolved]
  - Hypertension [Recovered/Resolved]

NARRATIVE: CASE EVENT DATE: 20170316
